FAERS Safety Report 8773924 (Version 6)
Quarter: 2013Q4

REPORT INFORMATION
  Report Type: Report from Study
  Country: BR (occurrence: BR)
  Receive Date: 20120907
  Receipt Date: 20131204
  Transmission Date: 20140711
  Serious: Yes (Other)
  Sender: FDA-Public Use
  Company Number: BR-ROCHE-1113378

PATIENT
  Age: 76 Year
  Sex: Female
  Weight: 68 kg

DRUGS (6)
  1. ACTEMRA [Suspect]
     Indication: RHEUMATOID ARTHRITIS
     Route: 042
     Dates: start: 20101022
  2. LOSARTAN [Concomitant]
     Route: 065
  3. ATENSINA [Concomitant]
     Indication: HYPERTENSION
     Route: 065
  4. LACTULOSE [Concomitant]
     Route: 065
  5. OMEGA 3 [Concomitant]
  6. ARADOIS [Concomitant]
     Indication: HYPERTENSION

REACTIONS (13)
  - Varicose ulceration [Recovered/Resolved]
  - Fall [Unknown]
  - Impaired healing [Recovered/Resolved]
  - Influenza [Recovered/Resolved]
  - Bronchitis [Recovered/Resolved]
  - Wound [Recovered/Resolved]
  - Urinary tract infection [Recovered/Resolved]
  - Infection [Recovered/Resolved]
  - Oedema [Recovered/Resolved]
  - Drug ineffective [Unknown]
  - Oedema peripheral [Not Recovered/Not Resolved]
  - Rheumatoid arthritis [Not Recovered/Not Resolved]
  - Varicose vein [Not Recovered/Not Resolved]
